FAERS Safety Report 20307281 (Version 1)
Quarter: 2022Q1

REPORT INFORMATION
  Report Type: Spontaneous
  Country: FR (occurrence: FR)
  Receive Date: 20220107
  Receipt Date: 20220107
  Transmission Date: 20220423
  Serious: Yes (Other)
  Sender: FDA-Public Use
  Company Number: FR-AUROBINDO-AUR-APL-2021-054504

PATIENT
  Age: 34 Year
  Sex: Male

DRUGS (1)
  1. OXYCODONE [Suspect]
     Active Substance: OXYCODONE
     Indication: Product used for unknown indication
     Dosage: UNK(OXYCODONE LP 60 AND OXYNORM 10 MG TAB, QUANTITIES NOT DETERMINED)
     Route: 065
     Dates: start: 201909, end: 20190928

REACTIONS (5)
  - Drug dependence [Not Recovered/Not Resolved]
  - Pain [Recovering/Resolving]
  - Withdrawal syndrome [Recovering/Resolving]
  - Drug abuse [Not Recovered/Not Resolved]
  - Anxiety [Recovering/Resolving]

NARRATIVE: CASE EVENT DATE: 20190929
